FAERS Safety Report 16278682 (Version 1)
Quarter: 2019Q2

REPORT INFORMATION
  Report Type: Report from Study
  Country: None (occurrence: AU)
  Receive Date: 20190506
  Receipt Date: 20190506
  Transmission Date: 20190711
  Serious: Yes (Hospitalization, Other)
  Sender: FDA-Public Use
  Company Number: AU-CANTON LABORATORIES, LLC-2066691

PATIENT
  Age: 62 Year
  Sex: Male
  Weight: 90 kg

DRUGS (8)
  1. POLARAMINE [Concomitant]
     Active Substance: DEXCHLORPHENIRAMINE MALEATE
     Route: 065
     Dates: start: 20180801
  2. SELONSERTIB [Suspect]
     Active Substance: SELONSERTIB
     Route: 048
     Dates: start: 20171208
  3. CLARITHROMYCIN. [Suspect]
     Active Substance: CLARITHROMYCIN
     Route: 048
     Dates: start: 20171213
  4. DOXYCYCLINE. [Suspect]
     Active Substance: DOXYCYCLINE
     Route: 048
     Dates: start: 20190304, end: 20190412
  5. NAPROSYN [Suspect]
     Active Substance: NAPROXEN
     Indication: WOUND INFECTION
     Route: 048
     Dates: start: 20190225, end: 20190318
  6. SELONSERTIB [Suspect]
     Active Substance: SELONSERTIB
     Route: 048
  7. FLUTIFORM [Concomitant]
     Active Substance: FLUTICASONE PROPIONATE\FORMOTEROL FUMARATE
     Route: 065
     Dates: start: 20171213
  8. GLICAZIDE [Concomitant]
     Active Substance: GLICLAZIDE
     Route: 065
     Dates: start: 20180903

REACTIONS (1)
  - Clostridium difficile colitis [Unknown]

NARRATIVE: CASE EVENT DATE: 2019
